FAERS Safety Report 4533415-1 (Version None)
Quarter: 2004Q4

REPORT INFORMATION
  Report Type: 
  Country: None (occurrence: None)
  Receive Date: 20041221
  Receipt Date: 20041213
  Transmission Date: 20050328
  Serious: Yes (Other)
  Sender: FDA-Public Use
  Company Number: GB-ROCHE-389106

PATIENT
  Age: 24 Year
  Sex: Female

DRUGS (4)
  1. CEFTRIAXONE SODIUM [Suspect]
     Indication: URINARY TRACT INFECTION BACTERIAL
     Route: 042
     Dates: start: 20041125, end: 20041126
  2. PARACETAMOL [Concomitant]
     Route: 048
     Dates: start: 20041123
  3. CODEINE PHOSPHATE [Concomitant]
     Route: 048
     Dates: start: 20041123
  4. NIFEDIPINE [Concomitant]
     Indication: FALSE LABOUR
     Route: 048
     Dates: start: 20041124

REACTIONS (1)
  - MYALGIA [None]
